FAERS Safety Report 17502983 (Version 1)
Quarter: 2020Q1

REPORT INFORMATION
  Report Type: Spontaneous
  Country: US (occurrence: US)
  Receive Date: 20200305
  Receipt Date: 20200305
  Transmission Date: 20200409
  Serious: No
  Sender: FDA-Public Use
  Company Number: US-ROCHE-2276720

PATIENT
  Age: 77 Year
  Sex: Male

DRUGS (1)
  1. XOLAIR [Suspect]
     Active Substance: OMALIZUMAB
     Indication: ASTHMA
     Dosage: SOLUTION,BENEATH THE SKIN,USUALLY VIA INJECTION
     Route: 058
     Dates: start: 20181108, end: 20190215

REACTIONS (1)
  - Therapy non-responder [Unknown]
